FAERS Safety Report 13469657 (Version 3)
Quarter: 2017Q2

REPORT INFORMATION
  Report Type: Spontaneous
  Country: US (occurrence: US)
  Receive Date: 20170422
  Receipt Date: 20170620
  Transmission Date: 20170830
  Serious: No
  Sender: FDA-Public Use
  Company Number: US-TEVA-758939ACC

PATIENT
  Age: 32 Year
  Sex: Female

DRUGS (1)
  1. COPAXONE [Suspect]
     Active Substance: GLATIRAMER ACETATE
     Indication: MULTIPLE SCLEROSIS
     Route: 058
     Dates: start: 20160913

REACTIONS (3)
  - Anxiety [Not Recovered/Not Resolved]
  - Fall [Unknown]
  - Chest pain [Not Recovered/Not Resolved]

NARRATIVE: CASE EVENT DATE: 201703
